FAERS Safety Report 7620579-6 (Version None)
Quarter: 2011Q3

REPORT INFORMATION
  Report Type: 
  Country: None (occurrence: None)
  Receive Date: 20110719
  Receipt Date: 20110713
  Transmission Date: 20111222
  Serious: Yes (Other)
  Sender: FDA-Public Use
  Company Number: CZ-ROCHE-786008

PATIENT
  Sex: Female
  Weight: 64 kg

DRUGS (5)
  1. BONIVA [Suspect]
     Route: 042
     Dates: start: 20100621
  2. CORTICOSTEROIDS [Concomitant]
  3. MEDROL [Concomitant]
     Dates: start: 20100101
  4. TRIAMCINOLONE [Concomitant]
     Dates: end: 20100101
  5. BONIVA [Suspect]
     Indication: OSTEOPOROSIS POSTMENOPAUSAL
     Route: 048
     Dates: start: 20071101, end: 20100620

REACTIONS (2)
  - OSTEONECROSIS OF JAW [None]
  - GASTROINTESTINAL DISORDER [None]
